FAERS Safety Report 8386295-0 (Version None)
Quarter: 2012Q2

REPORT INFORMATION
  Report Type: 
  Country: None (occurrence: None)
  Receive Date: 20120525
  Receipt Date: 20120517
  Transmission Date: 20120825
  Serious: Yes (Other)
  Sender: FDA-Public Use
  Company Number: BR-SANOFI-AVENTIS-2012SA035449

PATIENT
  Age: 78 Year
  Sex: Male
  Weight: 75 kg

DRUGS (8)
  1. FENOFIBRATE [Concomitant]
     Indication: FAT TISSUE INCREASED
     Dosage: STRENGTH: 200MG
     Route: 048
     Dates: start: 20110101
  2. CLIKSTAR [Suspect]
     Indication: DEVICE THERAPY
     Dates: start: 20110101
  3. LANTUS [Suspect]
     Route: 058
     Dates: start: 20110101
  4. ATENOLOL [Concomitant]
     Route: 048
     Dates: start: 20090101
  5. LOSARTAN POTASSIUM [Concomitant]
     Dosage: STRENGTH: 50MG
     Route: 048
     Dates: start: 20110101
  6. JANUVIA [Concomitant]
     Dosage: STRENGTH: 20MG
     Route: 048
     Dates: start: 20110101
  7. ROSUVASTATIN [Concomitant]
     Dosage: STRENGTH: 20MG
     Route: 048
     Dates: start: 20120101
  8. LIPIDIL [Concomitant]
     Indication: FAT TISSUE INCREASED
     Dosage: STRENGTH: 200MG
     Route: 048

REACTIONS (7)
  - HAND FRACTURE [None]
  - WEIGHT DECREASED [None]
  - HYPERGLYCAEMIA [None]
  - INJECTION SITE PAIN [None]
  - DRUG ADMINISTRATION ERROR [None]
  - DYSPHONIA [None]
  - GAIT DISTURBANCE [None]
